FAERS Safety Report 19412259 (Version 1)
Quarter: 2021Q2

REPORT INFORMATION
  Report Type: Spontaneous
  Country: US (occurrence: US)
  Receive Date: 20210614
  Receipt Date: 20210614
  Transmission Date: 20210717
  Serious: Yes (Other)
  Sender: FDA-Public Use
  Company Number: NVSC2021US131239

PATIENT
  Age: 76 Year
  Sex: Male

DRUGS (2)
  1. RANITIDINE. [Suspect]
     Active Substance: RANITIDINE
     Indication: IRRITABLE BOWEL SYNDROME
     Dosage: 150 MG, QD
     Route: 065
     Dates: end: 201808
  2. RANITIDINE. [Suspect]
     Active Substance: RANITIDINE
     Indication: IRRITABLE BOWEL SYNDROME
     Dosage: 150 MG, QD
     Route: 065
     Dates: end: 201808

REACTIONS (4)
  - Pancreatic carcinoma stage IV [Unknown]
  - Prostate cancer stage IV [Unknown]
  - Product use in unapproved indication [Unknown]
  - Throat cancer [Unknown]

NARRATIVE: CASE EVENT DATE: 20120101
